FAERS Safety Report 9068674 (Version 2)
Quarter: 2013Q1

REPORT INFORMATION
  Report Type: Report from Study
  Country: US (occurrence: US)
  Receive Date: 20130206
  Receipt Date: 20130227
  Transmission Date: 20140127
  Serious: Yes (Hospitalization)
  Sender: FDA-Public Use
  Company Number: US-MERCK-1302USA001196

PATIENT
  Age: 25 Year
  Sex: Female
  Weight: 85 kg

DRUGS (4)
  1. VORINOSTAT [Suspect]
     Indication: NEOPLASM
     Dosage: CYCLE 0 (CYCLE=14 DAYS) 400 MG, ON DAYS 1-3
     Route: 048
     Dates: start: 20130114, end: 20130116
  2. VORINOSTAT [Suspect]
     Dosage: CYCLE 0 (CYCLE=14 DAYS) 1200 MG, ON DAYS 8-10
     Route: 048
     Dates: start: 20130121, end: 20130123
  3. VORINOSTAT [Suspect]
     Dosage: CYCLE I+ (CYCLE = 21 DAYS) 1200 MG PO ON DAYS 1-3
     Route: 048
     Dates: start: 20130211, end: 20130213
  4. PACLITAXEL [Suspect]
     Indication: NEOPLASM
     Dosage: CYCLE I+ (CYCLE = 21 DAYS) 175MG/M2 IV OVER 3HRS ON DAY 3
     Route: 042
     Dates: start: 20130213, end: 20130213

REACTIONS (3)
  - Duodenal ulcer [Not Recovered/Not Resolved]
  - Lung infection [Not Recovered/Not Resolved]
  - Duodenal ulcer [Not Recovered/Not Resolved]
